FAERS Safety Report 7792213-6 (Version None)
Quarter: 2011Q4

REPORT INFORMATION
  Report Type: 
  Country: None (occurrence: None)
  Receive Date: 20111003
  Receipt Date: 20111003
  Transmission Date: 20120403
  Serious: Yes (Other)
  Sender: FDA-Public Use
  Company Number: None

PATIENT
  Age: 46 Year
  Sex: Female
  Weight: 68.038 kg

DRUGS (1)
  1. METHIMAZOLE [Suspect]
     Indication: HYPOTHYROIDISM
     Dosage: 1 TABLET
     Route: 048
     Dates: start: 20110901, end: 20110930

REACTIONS (14)
  - PYREXIA [None]
  - CHILLS [None]
  - GAIT DISTURBANCE [None]
  - CHROMATURIA [None]
  - ABDOMINAL PAIN UPPER [None]
  - DIZZINESS [None]
  - HEADACHE [None]
  - DECREASED APPETITE [None]
  - ARTHRALGIA [None]
  - NAUSEA [None]
  - PRURITUS [None]
  - VOMITING [None]
  - ASTHENIA [None]
  - SOMNOLENCE [None]
